FAERS Safety Report 8889381 (Version 1)
Quarter: 2013Q1

REPORT INFORMATION
  Report Type: Spontaneous
  Country: US (occurrence: None)
  Receive Date: 20121102
  Receipt Date: 20121102
  Transmission Date: 20140127
  Serious: Yes (Hospitalization, Other)
  Sender: FDA-Public Use
  Company Number: None

PATIENT
  Age: 40 Year
  Sex: Female
  Weight: 90.9 kg

DRUGS (6)
  1. IPILIMUMAB [Suspect]
     Indication: MALIGNANT MELANOMA
     Dosage: 10MG/KG IV X 1 DOSE, TOTAL DOSE 1114MG
     Route: 042
     Dates: start: 20120726
  2. DIOVAN HCT [Concomitant]
  3. SYNTHROID [Concomitant]
  4. PREVACID [Concomitant]
  5. EQUATE [Concomitant]
  6. ZOFRAN [Concomitant]

REACTIONS (10)
  - Colitis [None]
  - Back pain [None]
  - Constipation [None]
  - Hiatus hernia [None]
  - Polyp [None]
  - Impaired gastric emptying [None]
  - Impaired gastric emptying [None]
  - Oesophageal achalasia [None]
  - Erosive oesophagitis [None]
  - Pylorospasm [None]
